FAERS Safety Report 24130348 (Version 4)
Quarter: 2024Q4

REPORT INFORMATION
  Report Type: Report from Study
  Country: US (occurrence: US)
  Receive Date: 20240724
  Receipt Date: 20241009
  Transmission Date: 20250115
  Serious: Yes (Other)
  Sender: ROCHE
  Company Number: US-ROCHE-10000028048

PATIENT
  Age: 53 Year
  Sex: Female
  Weight: 101.06 kg

DRUGS (20)
  1. XOLAIR PFS [Suspect]
     Active Substance: OMALIZUMAB
     Indication: Idiopathic urticaria
     Dosage: MORE DOSAGE INFORMATION IS 75 MG PREFILLED SYRINGE
     Route: 058
     Dates: start: 2014
  2. XOLAIR PFS [Suspect]
     Active Substance: OMALIZUMAB
     Dosage: MORE DOSAGE INFORMATION IS 75 MG PREFILLED SYRINGE
     Route: 058
     Dates: start: 2014
  3. XOLAIR PFS [Suspect]
     Active Substance: OMALIZUMAB
     Route: 058
     Dates: start: 20240711
  4. PAROXETINE HYDROCHLORIDE [Concomitant]
     Active Substance: PAROXETINE HYDROCHLORIDE
  5. BUSPIRONE [Concomitant]
     Active Substance: BUSPIRONE HYDROCHLORIDE
  6. CETIRIZINE [Concomitant]
     Active Substance: CETIRIZINE HYDROCHLORIDE
  7. CYCLOSPORINE [Concomitant]
     Active Substance: CYCLOSPORINE
     Route: 048
     Dates: start: 20240620
  8. DUPIXENT [Concomitant]
     Active Substance: DUPILUMAB
     Indication: Asthma
     Dosage: DOSE STRENGTH: 300MG/2ML SYRINGE
  9. ESTRADIOL [Concomitant]
     Active Substance: ESTRADIOL
  10. PREDNISONE [Concomitant]
     Active Substance: PREDNISONE
     Route: 048
     Dates: start: 20240423
  11. PREDNISONE [Concomitant]
     Active Substance: PREDNISONE
     Route: 048
     Dates: start: 20240423
  12. TRAZODONE [Concomitant]
     Active Substance: TRAZODONE HYDROCHLORIDE
  13. TROSPIUM [Concomitant]
     Active Substance: TROSPIUM
  14. HYDROXYZINE HYDROCHLORIDE [Concomitant]
     Active Substance: HYDROXYZINE HYDROCHLORIDE
  15. HYDROXYZINE PAMOATE [Concomitant]
     Active Substance: HYDROXYZINE PAMOATE
  16. MONTELUKAST [Concomitant]
     Active Substance: MONTELUKAST
     Route: 048
     Dates: start: 20240423
  17. SPIRONOLACTONE [Concomitant]
     Active Substance: SPIRONOLACTONE
  18. EPIPEN [Concomitant]
     Active Substance: EPINEPHRINE
     Route: 030
     Dates: start: 20240711, end: 20240909
  19. SINGULAIR [Concomitant]
     Active Substance: MONTELUKAST SODIUM
  20. ALBUTEROL [Concomitant]
     Active Substance: ALBUTEROL
     Dosage: 2 PUFFS EVERY 4 TO 6 HOURS AS NEEDED.

REACTIONS (5)
  - Anaphylactic reaction [Unknown]
  - Urticaria [Recovered/Resolved]
  - Osteoporosis [Not Recovered/Not Resolved]
  - Injection site pruritus [Recovered/Resolved]
  - Injection site erythema [Recovered/Resolved]

NARRATIVE: CASE EVENT DATE: 20140601
